FAERS Safety Report 8844781 (Version 2)
Quarter: 2012Q4

REPORT INFORMATION
  Report Type: Report from Study
  Country: JP (occurrence: JP)
  Receive Date: 20121017
  Receipt Date: 20121024
  Transmission Date: 20130627
  Serious: Yes (Hospitalization)
  Sender: FDA-Public Use
  Company Number: JP-VERTEX PHARMACEUTICAL INC.-2012-022958

PATIENT
  Age: 68 Year
  Sex: Female

DRUGS (9)
  1. VX-950 [Suspect]
     Indication: HEPATITIS C
     Dosage: 1500 mg, qd
     Route: 048
     Dates: start: 20120904, end: 20121009
  2. REBETOL [Suspect]
     Indication: HEPATITIS C
     Dosage: 600 mg, qd
     Route: 048
     Dates: start: 20120904, end: 20121002
  3. REBETOL [Suspect]
     Dosage: 600, 400mg/every 2 days
     Route: 058
     Dates: start: 20121003, end: 20121009
  4. PEGINTRON                          /01543001/ [Suspect]
     Indication: HEPATITIS C
     Dosage: 100 ?g/kg, UNK
     Route: 058
     Dates: start: 20120904, end: 20121002
  5. ALFA-D [Concomitant]
     Dosage: 1 mg, qd
     Route: 048
     Dates: end: 20121009
  6. CONIEL [Concomitant]
     Dosage: 4 mg, qd
     Route: 048
     Dates: end: 20121009
  7. LANSOPRAZOLE [Concomitant]
     Dosage: 15 mg, qd
     Route: 048
     Dates: end: 20121009
  8. FERROMIA /00023516/ [Concomitant]
     Dosage: 50 mg, qd
     Route: 048
     Dates: start: 20120905, end: 20120925
  9. GOODMIN [Concomitant]
     Dosage: 0.25 mg, qd
     Route: 048
     Dates: end: 20121009

REACTIONS (1)
  - Renal failure acute [Unknown]
